FAERS Safety Report 14482044 (Version 8)
Quarter: 2019Q1

REPORT INFORMATION
  Report Type: Spontaneous
  Country: BE (occurrence: BE)
  Receive Date: 20180202
  Receipt Date: 20190208
  Transmission Date: 20190417
  Serious: Yes (Hospitalization, Other)
  Sender: FDA-Public Use
  Company Number: BE-IPSEN BIOPHARMACEUTICALS, INC.-2018-01884

PATIENT
  Age: 59 Year
  Sex: Male
  Weight: 66 kg

DRUGS (22)
  1. 5-FU [Suspect]
     Active Substance: FLUOROURACIL
     Indication: COLORECTAL CANCER METASTATIC
     Dosage: IV BOLUS
     Route: 042
  2. LEUCOVORIN. [Suspect]
     Active Substance: LEUCOVORIN
     Route: 042
  3. OLANZAPINE. [Concomitant]
     Active Substance: OLANZAPINE
     Dates: start: 20170503, end: 20171223
  4. COVERAM [Concomitant]
     Active Substance: AMLODIPINE\PERINDOPRIL
  5. COVERAM [Concomitant]
     Active Substance: AMLODIPINE\PERINDOPRIL
     Dates: start: 20171205, end: 20171214
  6. EMCONCOR MITIS [Concomitant]
     Dates: start: 20170523
  7. AFLIBERCEPT [Suspect]
     Active Substance: AFLIBERCEPT
     Indication: COLORECTAL CANCER METASTATIC
     Route: 042
  8. LAXIDO [Concomitant]
     Active Substance: POLYETHYLENE GLYCOL 3350\POTASSIUM CHLORIDE\SODIUM BICARBONATE\SODIUM CHLORIDE
     Dates: start: 20170523
  9. IMODIUM [Concomitant]
     Active Substance: LOPERAMIDE HYDROCHLORIDE
     Dates: start: 20171205, end: 20171214
  10. BACLOFEN. [Concomitant]
     Active Substance: BACLOFEN
     Dates: start: 20170503
  11. PEGYLATED LIPOSOMAL IRINOTECAN [Suspect]
     Active Substance: IRINOTECAN HYDROCHLORIDE
     Indication: COLORECTAL CANCER METASTATIC
     Dosage: UNKNOWN
     Route: 042
  12. 5-FU [Suspect]
     Active Substance: FLUOROURACIL
     Route: 040
  13. TRIPLIXAM [Concomitant]
     Active Substance: AMLODIPINE BESYLATE\INDAPAMIDE\PERINDOPRIL ARGININE
     Dates: start: 20171102
  14. PEGYLATED LIPOSOMAL IRINOTECAN [Suspect]
     Active Substance: IRINOTECAN HYDROCHLORIDE
     Indication: OFF LABEL USE
  15. LEUCOVORIN. [Suspect]
     Active Substance: LEUCOVORIN
     Indication: COLORECTAL CANCER METASTATIC
     Route: 042
  16. BUSCOPAN [Concomitant]
     Active Substance: BUTYLSCOPOLAMINE BROMIDE
     Dates: start: 20170916
  17. IMODIUM [Concomitant]
     Active Substance: LOPERAMIDE HYDROCHLORIDE
     Dates: start: 20170523
  18. CIPROXINE [Concomitant]
     Active Substance: CIPROFLOXACIN
     Dates: start: 20171205, end: 20171214
  19. PANTOPRAZOLE [Concomitant]
     Active Substance: PANTOPRAZOLE
     Dates: start: 20170601
  20. AFLIBERCEPT [Suspect]
     Active Substance: AFLIBERCEPT
     Route: 042
  21. IMODIUM [Concomitant]
     Active Substance: LOPERAMIDE HYDROCHLORIDE
     Dates: start: 20170919
  22. COVERAM [Concomitant]
     Active Substance: AMLODIPINE\PERINDOPRIL
     Dates: start: 20170523

REACTIONS (2)
  - Neutropenia [Recovered/Resolved]
  - Mesenteric artery thrombosis [Not Recovered/Not Resolved]

NARRATIVE: CASE EVENT DATE: 20171229
